FAERS Safety Report 5025756-9 (Version None)
Quarter: 2006Q2

REPORT INFORMATION
  Report Type: 
  Country: None (occurrence: None)
  Receive Date: 20060609
  Receipt Date: 20060609
  Transmission Date: 20061013
  Serious: Yes (Hospitalization)
  Sender: FDA-Public Use
  Company Number: None

PATIENT
  Age: 73 Year
  Sex: Male

DRUGS (1)
  1. BENZOCAINE (CETACAINE) SPRAY [Suspect]
     Dates: start: 20060606

REACTIONS (2)
  - METHAEMOGLOBINAEMIA [None]
  - POST PROCEDURAL COMPLICATION [None]
